FAERS Safety Report 8924515 (Version 1)
Quarter: 2012Q4

REPORT INFORMATION
  Report Type: 
  Country: US (occurrence: None)
  Receive Date: 20121121
  Receipt Date: 20121121
  Transmission Date: 20130627
  Serious: Yes (Hospitalization)
  Sender: FDA-Public Use
  Company Number: None

PATIENT
  Sex: Female
  Weight: 61.6 kg

DRUGS (2)
  1. CISPLATIN [Suspect]
     Dates: start: 20120820
  2. ALIMTA [Suspect]
     Dates: start: 20120820

REACTIONS (1)
  - Deep vein thrombosis [None]
